FAERS Safety Report 12985323 (Version 4)
Quarter: 2017Q1

REPORT INFORMATION
  Report Type: Spontaneous
  Country: AU (occurrence: AU)
  Receive Date: 20161130
  Receipt Date: 20170120
  Transmission Date: 20170428
  Serious: Yes (Other)
  Sender: FDA-Public Use
  Company Number: AU-ABBVIE-16K-008-1790351-00

PATIENT
  Age: 43 Year
  Sex: Female

DRUGS (4)
  1. INFLIXIMAB HOSPIRA [Suspect]
     Active Substance: INFLIXIMAB
     Indication: PRODUCT USED FOR UNKNOWN INDICATION
     Route: 065
     Dates: start: 2011
  2. MESALAZINE [Suspect]
     Active Substance: MESALAMINE
     Indication: PRODUCT USED FOR UNKNOWN INDICATION
     Route: 065
  3. PREDNISOLONE. [Suspect]
     Active Substance: PREDNISOLONE
     Indication: PRODUCT USED FOR UNKNOWN INDICATION
     Dosage: 5 MILLIGRAM
     Route: 065
  4. HUMIRA [Suspect]
     Active Substance: ADALIMUMAB
     Indication: PRODUCT USED FOR UNKNOWN INDICATION
     Route: 058

REACTIONS (11)
  - Herpes simplex [Unknown]
  - Crohn^s disease [Unknown]
  - Colour blindness [Unknown]
  - Eye pain [Unknown]
  - Headache [Unknown]
  - Uveitis [Unknown]
  - Multiple sclerosis [Unknown]
  - Optic neuritis [Unknown]
  - Vision blurred [Unknown]
  - Demyelination [Unknown]
  - Abnormal sensation in eye [Unknown]
